FAERS Safety Report 23566937 (Version 1)
Quarter: 2024Q1

REPORT INFORMATION
  Report Type: Spontaneous
  Country: US (occurrence: US)
  Receive Date: 20240226
  Receipt Date: 20240226
  Transmission Date: 20240409
  Serious: No
  Sender: FDA-Public Use
  Company Number: US-AMNEAL PHARMACEUTICALS-2023-AMRX-03112

PATIENT
  Sex: Female

DRUGS (6)
  1. RYTARY [Suspect]
     Active Substance: CARBIDOPA\LEVODOPA
     Indication: Product used for unknown indication
     Dosage: 61.25/245 MILLIGRAM, 2 CAPSULES IN THE MORNING, AFTERNOON, EVENING, AND AT NIGHTTIME
     Route: 048
  2. RYTARY [Suspect]
     Active Substance: CARBIDOPA\LEVODOPA
     Dosage: 48.75- 195 MG, 1 CAPSULE IN THE MORNING, 1 CAPSULE IN AFTERNOON, 1 CAPSULE IN EVENING, AND 1 CAPSULE
     Route: 048
     Dates: start: 20231206
  3. RYTARY [Suspect]
     Active Substance: CARBIDOPA\LEVODOPA
     Dosage: 48.75- 195 MG, PATIENTS AFTERNOON DOSE INCREASED FROM 1 CAPSULE TO 2 CAPSULES IN THE AFTERNOON
     Route: 048
     Dates: start: 20230228
  4. RYTARY [Suspect]
     Active Substance: CARBIDOPA\LEVODOPA
     Dosage: 48.75- 195 MG, 1 CAPSULE IN THE MORNING, 2 CAPSULE IN AFTERNOON, 1 CAPSULE IN EVENING, AND 2 CAPSULE
     Route: 048
     Dates: start: 20230721
  5. RYTARY [Suspect]
     Active Substance: CARBIDOPA\LEVODOPA
     Dosage: 61.25- 245 MG, 1 CAPSULE IN THE MORNING, 2 CAPSULE IN AFTERNOON, 1 CAPSULE IN EVENING, AND 2 CAPSULE
     Route: 048
     Dates: start: 20230727
  6. RYTARY [Suspect]
     Active Substance: CARBIDOPA\LEVODOPA
     Dosage: 61.25- 245 MG, 2 CAPSULE IN THE MORNING, 2 CAPSULE IN AFTERNOON, 2 CAPSULE IN EVENING, AND 2 CAPSULE
     Route: 048
     Dates: start: 20230801

REACTIONS (3)
  - Drug intolerance [Unknown]
  - Abdominal discomfort [Unknown]
  - Headache [Unknown]
